FAERS Safety Report 24067771 (Version 1)
Quarter: 2024Q3

REPORT INFORMATION
  Report Type: Other
  Country: PT (occurrence: PT)
  Receive Date: 20240710
  Receipt Date: 20240710
  Transmission Date: 20241016
  Serious: Yes (Disabling)
  Sender: B BRAUN
  Company Number: PT-B.Braun Medical Inc.-2158982

PATIENT
  Age: 43 Year
  Sex: Female

DRUGS (4)
  1. HEPARIN SODIUM IN DEXTROSE [Suspect]
     Active Substance: HEPARIN SODIUM
     Indication: Anticoagulant therapy
  2. ENOXAPARIN [Suspect]
     Active Substance: ENOXAPARIN
  3. SODIUM CHLORIDE [Concomitant]
     Active Substance: SODIUM CHLORIDE
  4. ALTEPLASE [Suspect]
     Active Substance: ALTEPLASE

REACTIONS (1)
  - Drug ineffective [Unknown]
